FAERS Safety Report 15082368 (Version 5)
Quarter: 2018Q3

REPORT INFORMATION
  Report Type: Spontaneous
  Country: US (occurrence: US)
  Receive Date: 20180628
  Receipt Date: 20180907
  Transmission Date: 20181010
  Serious: No
  Sender: FDA-Public Use
  Company Number: US-PFIZER INC-2018260248

PATIENT
  Age: 84 Year
  Sex: Male

DRUGS (2)
  1. BOSULIF [Suspect]
     Active Substance: BOSUTINIB MONOHYDRATE
     Indication: BLOOD OSMOLARITY INCREASED
     Dosage: 200 MG, 1X/DAY
     Dates: start: 20180621
  2. BOSULIF [Suspect]
     Active Substance: BOSUTINIB MONOHYDRATE
     Indication: HYPERNATRAEMIA

REACTIONS (5)
  - Fatigue [Recovering/Resolving]
  - Mobility decreased [Unknown]
  - Product use in unapproved indication [Unknown]
  - Asthenia [Recovering/Resolving]
  - Decreased appetite [Unknown]

NARRATIVE: CASE EVENT DATE: 201806
